FAERS Safety Report 8960379 (Version 1)
Quarter: 2012Q4

REPORT INFORMATION
  Report Type: 
  Country: US (occurrence: US)
  Receive Date: 20121211
  Receipt Date: 20121211
  Transmission Date: 20130627
  Serious: Yes (Hospitalization, Other)
  Sender: FDA-Public Use
  Company Number: US-BAYER-2012-129864

PATIENT
  Age: 48 Year
  Sex: Female

DRUGS (1)
  1. MAGNEVIST [Suspect]
     Indication: MRI
     Dosage: 18 ml, UNK
     Route: 042
     Dates: start: 20121207

REACTIONS (4)
  - Anaphylactic reaction [None]
  - Flushing [None]
  - Cough [None]
  - Dyspnoea [None]
